FAERS Safety Report 9133165 (Version 1)
Quarter: 2013Q1

REPORT INFORMATION
  Report Type: Report from Study
  Country: LT (occurrence: LT)
  Receive Date: 20130301
  Receipt Date: 20130301
  Transmission Date: 20140127
  Serious: Yes (Hospitalization)
  Sender: FDA-Public Use
  Company Number: LT-009507513-1301LTU008078

PATIENT
  Age: 15 Year
  Sex: Female
  Weight: 68 kg

DRUGS (13)
  1. APREPITANT [Suspect]
     Indication: PROPHYLAXIS OF NAUSEA AND VOMITING
     Dosage: 125 MG, QD
     Route: 048
     Dates: start: 20121227, end: 20121227
  2. APREPITANT [Suspect]
     Dosage: 80 MG, QD
     Route: 048
     Dates: start: 20121228, end: 20121229
  3. APREPITANT [Suspect]
     Dosage: 125 MG, QD
     Route: 048
     Dates: start: 20130123, end: 20130123
  4. APREPITANT [Suspect]
     Dosage: 80 MG, QD
     Route: 048
     Dates: start: 20130124, end: 20130125
  5. ONDANSETRON [Suspect]
     Indication: PROPHYLAXIS OF NAUSEA AND VOMITING
     Dosage: 8 MG, QPM
     Route: 042
     Dates: start: 20121227, end: 20121227
  6. ONDANSETRON [Suspect]
     Dosage: 8 MG, QAM
     Route: 042
     Dates: start: 20121228, end: 20121228
  7. ONDANSETRON [Suspect]
     Dosage: 8 MG, QPM
     Route: 042
     Dates: start: 20130123, end: 20130123
  8. ONDANSETRON [Suspect]
     Dosage: 8 MG, QAM
     Route: 042
     Dates: start: 20130124, end: 20130124
  9. VINCRISTINE TEVA [Concomitant]
     Indication: CHEMOTHERAPY
     Dosage: 2 MG, QD
     Route: 065
     Dates: start: 20121227, end: 20121227
  10. COSMEGEN LYOVAC [Concomitant]
     Indication: CHEMOTHERAPY
     Dosage: 2 MG, QD
     Route: 065
     Dates: start: 20121227, end: 20121227
  11. HOLOXAN [Concomitant]
     Indication: CHEMOTHERAPY
     Dosage: UNK, QD
     Route: 042
     Dates: start: 20121227, end: 20121228
  12. UROMITEXAN [Concomitant]
     Indication: CHEMOTHERAPY
     Dosage: UNK, PRN
     Route: 042
     Dates: start: 20121227, end: 20121230
  13. ELITAN [Concomitant]
     Indication: VOMITING
     Dosage: UNK, PRN
     Route: 065
     Dates: start: 20121228, end: 20121228

REACTIONS (1)
  - Cellulitis [Recovered/Resolved]
